FAERS Safety Report 8977657 (Version 3)
Quarter: 2013Q1

REPORT INFORMATION
  Report Type: Spontaneous
  Country: JP (occurrence: JP)
  Receive Date: 20121220
  Receipt Date: 20130107
  Transmission Date: 20140127
  Serious: Yes (Hospitalization)
  Sender: FDA-Public Use
  Company Number: JP-GLAXOSMITHKLINE-B0853709A

PATIENT
  Age: 74 Year
  Sex: Male

DRUGS (10)
  1. VALTREX [Suspect]
     Indication: HERPES SIMPLEX
     Dosage: 1000MG THREE TIMES PER DAY
     Route: 048
     Dates: start: 20121201, end: 20121212
  2. PROCYLIN [Concomitant]
     Indication: PERIPHERAL ARTERIAL OCCLUSIVE DISEASE
     Dosage: 40MCG THREE TIMES PER DAY
     Route: 048
  3. CHINESE MEDICINE [Concomitant]
     Indication: PERIPHERAL ARTERIAL OCCLUSIVE DISEASE
     Dosage: 3G TWICE PER DAY
     Route: 048
  4. LAC-B [Concomitant]
     Indication: DIARRHOEA
     Route: 048
  5. CHINESE MEDICINE [Concomitant]
     Indication: DIARRHOEA
     Dosage: 2.5G THREE TIMES PER DAY
     Route: 048
  6. VOGLIBOSE [Concomitant]
     Indication: TYPE 2 DIABETES MELLITUS
     Dosage: .3MG THREE TIMES PER DAY
     Route: 048
  7. MEDET [Concomitant]
     Indication: TYPE 2 DIABETES MELLITUS
     Dosage: 250MG THREE TIMES PER DAY
     Route: 048
  8. AMARYL [Concomitant]
     Indication: TYPE 2 DIABETES MELLITUS
     Dosage: 1MG THREE TIMES PER DAY
     Route: 048
  9. VOLTAREN SR [Concomitant]
     Dosage: 37.5MG TWICE PER DAY
     Route: 048
  10. XARELTO [Concomitant]
     Route: 048

REACTIONS (6)
  - Renal failure acute [Recovered/Resolved]
  - Dizziness [Unknown]
  - Diplopia [Unknown]
  - Cardiac murmur [Unknown]
  - Arrhythmia [Unknown]
  - Blood creatinine increased [Unknown]
